FAERS Safety Report 5957963-2 (Version None)
Quarter: 2008Q4

REPORT INFORMATION
  Report Type: 
  Country: None (occurrence: None)
  Receive Date: 20081119
  Receipt Date: 20081111
  Transmission Date: 20090506
  Serious: Yes (Hospitalization, Other)
  Sender: FDA-Public Use
  Company Number: US-AMGEN-QUU318493

PATIENT
  Age: 70 Year
  Sex: Male

DRUGS (3)
  1. NEULASTA [Suspect]
     Indication: PROSTATE CANCER
     Dates: start: 20080201
  2. TAXOTERE [Suspect]
     Dates: start: 20080201
  3. UNSPECIFIED BETA BLOCKER [Concomitant]
     Dates: start: 20080201

REACTIONS (5)
  - DYSPNOEA [None]
  - LUNG DISORDER [None]
  - OXYGEN SATURATION DECREASED [None]
  - PNEUMONIA [None]
  - PULMONARY FIBROSIS [None]
